FAERS Safety Report 6372307-2 (Version None)
Quarter: 2009Q3

REPORT INFORMATION
  Report Type: 
  Country: None (occurrence: None)
  Receive Date: 20090924
  Receipt Date: 20081007
  Transmission Date: 20100115
  Serious: No
  Sender: FDA-Public Use
  Company Number: US-ASTRAZENECA-2008UW21954

PATIENT
  Age: 49 Year
  Sex: Female
  Weight: 52.2 kg

DRUGS (6)
  1. SEROQUEL [Suspect]
     Route: 048
     Dates: start: 20080910
  2. TRAZODONE HCL [Concomitant]
  3. AMBIEN CR [Concomitant]
  4. ZYAC [Concomitant]
  5. PAMELOR [Concomitant]
  6. XANAX [Concomitant]

REACTIONS (3)
  - FATIGUE [None]
  - ILL-DEFINED DISORDER [None]
  - TREMOR [None]
